FAERS Safety Report 7064243-3 (Version None)
Quarter: 2010Q4

REPORT INFORMATION
  Report Type: 
  Country: None (occurrence: None)
  Receive Date: 20101027
  Receipt Date: 20101014
  Transmission Date: 20110411
  Serious: Yes (Hospitalization)
  Sender: FDA-Public Use
  Company Number: ES-ELI_LILLY_AND_COMPANY-ES201010003351

PATIENT
  Sex: Female

DRUGS (8)
  1. FORTEO [Suspect]
     Indication: OSTEOPOROSIS
     Dosage: 20 UG, DAILY (1/D)
     Route: 058
     Dates: start: 20100601, end: 20101012
  2. INSULIN [Concomitant]
     Indication: DIABETES MELLITUS
     Route: 058
  3. LYRICA [Concomitant]
     Dosage: UNK, UNK
     Route: 048
  4. ALPRAZOLAN [Concomitant]
  5. ADOFEN SEMANAL [Concomitant]
     Route: 048
  6. ASPIRIN [Concomitant]
     Route: 048
  7. FUROSEMIDA                         /00032601/ [Concomitant]
     Route: 048
  8. VACCINES [Concomitant]
     Indication: ANTIVIRAL PROPHYLAXIS
     Dosage: UNK, UNKNOWN
     Route: 065
     Dates: start: 20101001

REACTIONS (2)
  - ARRHYTHMIA [None]
  - RESPIRATORY FAILURE [None]
